FAERS Safety Report 7963857-3 (Version None)
Quarter: 2011Q4

REPORT INFORMATION
  Report Type: 
  Country: None (occurrence: None)
  Receive Date: 20111208
  Receipt Date: 20111128
  Transmission Date: 20120403
  Serious: Yes (Hospitalization)
  Sender: FDA-Public Use
  Company Number: US-BAYER-2011-045452

PATIENT
  Age: 27 Year
  Sex: Female
  Weight: 174 kg

DRUGS (22)
  1. DROSPIRENONE AND ETHINYL ESTRADIOL [Suspect]
     Indication: CONTRACEPTION
     Dosage: UNK
     Route: 048
     Dates: start: 20090528, end: 20090623
  2. DROSPIRENONE AND ETHINYL ESTRADIOL [Suspect]
     Indication: MENSTRUAL DISORDER
  3. PROAIR HFA [Concomitant]
     Dosage: 1-2 PUFF(S) EVERY 4 HOURS, PRN
     Route: 055
     Dates: start: 20090301
  4. AMOXICILLIN [Concomitant]
     Dosage: UNK
     Route: 048
     Dates: start: 20090401
  5. SIMVASTATIN [Concomitant]
     Indication: BLOOD CHOLESTEROL INCREASED
     Dosage: 40 MG, QD
     Route: 048
     Dates: start: 20090501, end: 20090701
  6. SPIRONOLACTONE [Concomitant]
     Indication: BLOOD POTASSIUM DECREASED
     Dosage: 50 MG, QD
     Route: 048
     Dates: start: 20090501, end: 20090701
  7. CHANTIX [Concomitant]
     Dosage: 1 MG, BID
     Route: 048
     Dates: start: 20090724
  8. OXYCODONE HCL AND ACETAMINOPHEN [Concomitant]
     Indication: PAIN
     Dosage: 5 MG - 325 MG
     Route: 048
     Dates: start: 20090301, end: 20090801
  9. LORAZEPAM [Concomitant]
     Indication: ANXIETY
     Dosage: 1 MG, BID, PRN
     Route: 048
  10. METHADONE HCL [Concomitant]
     Indication: ABDOMINAL PAIN
  11. SEROQUEL [Concomitant]
     Indication: SCHIZOPHRENIA
     Dosage: 400 MG, QD
     Route: 048
     Dates: start: 20090101, end: 20091101
  12. METFORMIN HCL [Concomitant]
     Indication: WEIGHT DECREASED
     Dosage: 500 MG, QD
     Route: 048
     Dates: start: 20090501, end: 20090601
  13. METHADONE HCL [Concomitant]
     Indication: PAIN
     Dosage: 10 MG, QD
     Route: 048
     Dates: start: 20090501, end: 20090701
  14. CYMBALTA [Concomitant]
     Indication: BIPOLAR DISORDER
  15. PROAIR HFA [Concomitant]
     Dosage: UNK UNK, PRN
  16. CYMBALTA [Concomitant]
     Indication: DEPRESSION
     Dosage: 60 MG, QD
     Route: 048
     Dates: start: 20090219
  17. ZOLPIDEM [Concomitant]
     Indication: INSOMNIA
     Dosage: 10 MG, UNK
     Route: 048
     Dates: start: 20090201, end: 20090701
  18. SEROQUEL [Concomitant]
     Indication: DEPRESSION
     Dosage: 400 MG, HS
  19. SEROQUEL [Concomitant]
     Indication: BIPOLAR DISORDER
  20. CLONAZEPAM [Concomitant]
     Indication: PANIC ATTACK
     Dosage: 0.5 MG, QD
     Route: 048
     Dates: start: 20090101, end: 20090701
  21. BENZONATATE [Concomitant]
     Dosage: 100 MG, TID, PRN
     Route: 048
     Dates: start: 20090416
  22. PERCOCET [Concomitant]
     Indication: ABDOMINAL PAIN

REACTIONS (2)
  - PULMONARY EMBOLISM [None]
  - DEEP VEIN THROMBOSIS [None]
